FAERS Safety Report 13345283 (Version 1)
Quarter: 2017Q1

REPORT INFORMATION
  Report Type: Spontaneous
  Country: US (occurrence: US)
  Receive Date: 20170316
  Receipt Date: 20170316
  Transmission Date: 20170428
  Serious: Yes (Other)
  Sender: FDA-Public Use
  Company Number: None

PATIENT
  Age: 38 Year
  Sex: Female
  Weight: 54.48 kg

DRUGS (1)
  1. COPAXONE [Suspect]
     Active Substance: GLATIRAMER ACETATE
     Indication: MULTIPLE SCLEROSIS
     Route: 058
     Dates: start: 20170124, end: 20170224

REACTIONS (4)
  - Chest discomfort [None]
  - Dyspnoea [None]
  - Hyperhidrosis [None]
  - Urticaria [None]

NARRATIVE: CASE EVENT DATE: 20170124
